FAERS Safety Report 19618670 (Version 2)
Quarter: 2022Q2

REPORT INFORMATION
  Report Type: Spontaneous
  Country: US (occurrence: None)
  Receive Date: 20210727
  Receipt Date: 20220621
  Transmission Date: 20220720
  Serious: No
  Sender: FDA-Public Use
  Company Number: US-ROCHE-2803567

PATIENT
  Age: 40 Year
  Sex: Female

DRUGS (2)
  1. XELODA [Suspect]
     Active Substance: CAPECITABINE
     Indication: Product used for unknown indication
     Route: 048
     Dates: start: 202101
  2. XELODA [Suspect]
     Active Substance: CAPECITABINE
     Route: 048
     Dates: start: 202102

REACTIONS (11)
  - Headache [Unknown]
  - Dizziness [Unknown]
  - Palmar-plantar erythrodysaesthesia syndrome [Unknown]
  - Hepatic enzyme increased [Unknown]
  - Blood sodium decreased [Unknown]
  - Blood chloride decreased [Unknown]
  - Blood creatinine increased [Unknown]
  - Blood glucose increased [Unknown]
  - Hypoaesthesia [Unknown]
  - Visual impairment [Unknown]
  - Erythema [Unknown]

NARRATIVE: CASE EVENT DATE: 20210401
